FAERS Safety Report 15309667 (Version 1)
Quarter: 2018Q3

REPORT INFORMATION
  Report Type: Spontaneous
  Country: US (occurrence: US)
  Receive Date: 20180823
  Receipt Date: 20180823
  Transmission Date: 20181010
  Serious: No
  Sender: FDA-Public Use
  Company Number: CN-ASTRAZENECA-2018SF06213

PATIENT
  Age: 69 Year
  Sex: Female
  Weight: 77.1 kg

DRUGS (4)
  1. NEXIUM 24HR [Suspect]
     Active Substance: ESOMEPRAZOLE MAGNESIUM
     Indication: GASTROOESOPHAGEAL REFLUX DISEASE
     Route: 048
     Dates: start: 20170918, end: 201710
  2. TRIAMTERENE AND HYDROCHLOROTHIAZIDE [Concomitant]
     Active Substance: HYDROCHLOROTHIAZIDE\TRIAMTERENE
     Indication: BLOOD PRESSURE ABNORMAL
     Dosage: 1 DF, DAILY(37.5/25MG CAPSULE BY MOUTH ONE DAILY[TRIAMTERENE, 37.5]/[HCTZ,25MG])
     Route: 048
  3. ATORVASTATIN [Concomitant]
     Active Substance: ATORVASTATIN
     Indication: BLOOD CHOLESTEROL ABNORMAL
     Dosage: 1 DF, 1X/DAY(20MG TABLET 1 TABLET BY MOUTH EVERY DAY AT BEDTIME)
     Route: 048
  4. TRIAMTERENE AND HYDROCHLOROTHIAZIDE [Concomitant]
     Active Substance: HYDROCHLOROTHIAZIDE\TRIAMTERENE
     Indication: DIURETIC THERAPY
     Dosage: 1 DF, DAILY(37.5/25MG CAPSULE BY MOUTH ONE DAILY[TRIAMTERENE, 37.5]/[HCTZ,25MG])
     Route: 048

REACTIONS (3)
  - Hypersensitivity [Unknown]
  - Rash [Unknown]
  - Erythema [Recovered/Resolved]

NARRATIVE: CASE EVENT DATE: 20171001
